FAERS Safety Report 4537453-4 (Version None)
Quarter: 2004Q4

REPORT INFORMATION
  Report Type: 
  Country: None (occurrence: None)
  Receive Date: 20041216
  Receipt Date: 20041007
  Transmission Date: 20050328
  Serious: Yes (Death)
  Sender: FDA-Public Use
  Company Number: HQWYE685511OCT04

PATIENT
  Age: 49 Year
  Sex: Male

DRUGS (3)
  1. EFFEXOR XR [Suspect]
     Indication: DEPRESSION
     Dosage: 150 MG 1X PER 1 DAY, ORAL
     Route: 048
     Dates: start: 20021101, end: 20021101
  2. EFFEXOR [Suspect]
     Indication: DEPRESSION
     Dosage: 1 DOSE 2X PER 1 DAY, ORAL
     Route: 048
     Dates: end: 20021101
  3. TRAZODONE (TRAZODONE) [Concomitant]

REACTIONS (1)
  - CARDIAC ARREST [None]
